FAERS Safety Report 6345968-1 (Version None)
Quarter: 2009Q3

REPORT INFORMATION
  Report Type: 
  Country: None (occurrence: None)
  Receive Date: 20090909
  Receipt Date: 20090831
  Transmission Date: 20100115
  Serious: Yes (Other)
  Sender: FDA-Public Use
  Company Number: US-NOVOPROD-291101

PATIENT
  Age: 71 Year
  Sex: Male
  Weight: 133.79 kg

DRUGS (2)
  1. NOVOLOG [Suspect]
     Indication: TYPE 2 DIABETES MELLITUS
     Dosage: 34 IU, QD + SLIDING SCALE 2-12 IU QD
     Route: 058
     Dates: start: 20060101
  2. LEVEMIR [Suspect]
     Indication: TYPE 2 DIABETES MELLITUS
     Dosage: 81 IU, QD (38 IN AM AND 43 IN AFTERNOON)
     Route: 058
     Dates: start: 20060101

REACTIONS (6)
  - DEVICE MALFUNCTION [None]
  - INFECTION [None]
  - INJECTION SITE EXTRAVASATION [None]
  - INJECTION SITE PAIN [None]
  - MALAISE [None]
  - TREMOR [None]
